FAERS Safety Report 8854176 (Version 2)
Quarter: 2012Q4

REPORT INFORMATION
  Report Type: Report from Study
  Country: JP (occurrence: JP)
  Receive Date: 20121022
  Receipt Date: 20121211
  Transmission Date: 20130627
  Serious: Yes (Hospitalization)
  Sender: FDA-Public Use
  Company Number: JP-SANOFI-AVENTIS-2012SA076090

PATIENT
  Age: 93 Year
  Sex: Female
  Weight: 43.5 kg

DRUGS (12)
  1. CLOPIDOGREL BISULFATE [Suspect]
     Indication: TRANSIENT CEREBRAL ISCHEMIA
     Route: 048
     Dates: start: 20120620, end: 20120802
  2. ALENDRONATE SODIUM [Concomitant]
     Route: 048
     Dates: end: 20120802
  3. AMLODIPINE [Concomitant]
     Route: 048
     Dates: end: 20120802
  4. LASIX [Concomitant]
     Route: 048
     Dates: end: 20120802
  5. DONEPEZIL HYDROCHLORIDE [Concomitant]
     Route: 048
     Dates: end: 20120802
  6. ALINAMIN F [Concomitant]
     Indication: PROPHYLAXIS
     Route: 048
     Dates: end: 20120802
  7. TOUGHMAC E [Concomitant]
     Indication: PROPHYLAXIS
     Route: 048
     Dates: end: 20120802
  8. KATIV N [Concomitant]
     Indication: PROPHYLAXIS
     Route: 048
     Dates: end: 20120802
  9. MERISLON [Concomitant]
     Route: 048
     Dates: end: 20120802
  10. SERENAMIN [Concomitant]
     Route: 048
     Dates: end: 20120802
  11. NITRODERM TTS [Concomitant]
     Route: 062
  12. BAYASPIRIN [Concomitant]
     Indication: TRANSIENT CEREBRAL ISCHAEMIA
     Route: 048
     Dates: start: 20120619, end: 20120623

REACTIONS (1)
  - Decreased appetite [Recovering/Resolving]
